FAERS Safety Report 9440638 (Version 1)
Quarter: 2013Q3

REPORT INFORMATION
  Report Type: Spontaneous
  Country: US (occurrence: US)
  Receive Date: 20130805
  Receipt Date: 20130805
  Transmission Date: 20140515
  Serious: No
  Sender: FDA-Public Use
  Company Number: US-PFIZER INC-2013225922

PATIENT
  Sex: Male

DRUGS (2)
  1. LIPITOR [Suspect]
     Dosage: 10 MG, UNK
     Route: 048
  2. LIPITOR [Suspect]
     Dosage: 20 MG, UNK
     Route: 048

REACTIONS (2)
  - Dysphagia [Unknown]
  - Product size issue [Unknown]
